APPROVED DRUG PRODUCT: RIVAROXABAN
Active Ingredient: RIVAROXABAN
Strength: 15MG
Dosage Form/Route: TABLET;ORAL
Application: A208543 | Product #002
Applicant: INVAGEN PHARMACEUTICALS INC
Approved: May 14, 2025 | RLD: No | RS: No | Type: DISCN